FAERS Safety Report 11293587 (Version 3)
Quarter: 2015Q3

REPORT INFORMATION
  Report Type: Spontaneous
  Country: IL (occurrence: IL)
  Receive Date: 20150722
  Receipt Date: 20150810
  Transmission Date: 20151125
  Serious: Yes (Death, Hospitalization)
  Sender: FDA-Public Use
  Company Number: IL-SA-2015SA107682

PATIENT
  Age: 60 Year
  Sex: Female

DRUGS (4)
  1. CLEXANE [Suspect]
     Active Substance: ENOXAPARIN SODIUM
     Dosage: DOSE:100 MILLIGRAM(S)/MILLILITRE
     Route: 065
  2. IMURAN [Concomitant]
     Active Substance: AZATHIOPRINE
  3. PREDNISONE. [Concomitant]
     Active Substance: PREDNISONE
  4. AVILAC [Concomitant]

REACTIONS (5)
  - Bacterial infection [Fatal]
  - Dyspnoea [Fatal]
  - Bacterial infection [Fatal]
  - Pain in extremity [Fatal]
  - Rash [Fatal]

NARRATIVE: CASE EVENT DATE: 201507
